FAERS Safety Report 17652784 (Version 2)
Quarter: 2020Q2

REPORT INFORMATION
  Report Type: Report from Study
  Country: None (occurrence: US)
  Receive Date: 20200409
  Receipt Date: 20200416
  Transmission Date: 20200713
  Serious: Yes (Hospitalization)
  Sender: FDA-Public Use
  Company Number: US-ABBVIE-19P-163-2948951-00

PATIENT
  Age: 75 Year
  Sex: Male
  Weight: 63.56 kg

DRUGS (5)
  1. OMEGA 3 [Concomitant]
     Active Substance: OMEGA-3 FATTY ACIDS
     Indication: PRODUCT USED FOR UNKNOWN INDICATION
  2. PREDNISONE. [Concomitant]
     Active Substance: PREDNISONE
     Indication: RHEUMATOID ARTHRITIS
  3. RINVOQ [Suspect]
     Active Substance: UPADACITINIB
     Indication: RHEUMATOID ARTHRITIS
     Route: 048
     Dates: start: 20190910, end: 20191221
  4. GLUCOSAMINE CHONDROITIN [Concomitant]
     Active Substance: CHONDROITIN SULFATE (BOVINE)\GLUCOSAMINE HYDROCHLORIDE
     Indication: PRODUCT USED FOR UNKNOWN INDICATION
  5. RINVOQ [Suspect]
     Active Substance: UPADACITINIB
     Indication: COLITIS ULCERATIVE
     Route: 048
     Dates: start: 20200201, end: 202003

REACTIONS (15)
  - Syncope [Recovered/Resolved]
  - Dehydration [Recovered/Resolved]
  - Nasal congestion [Recovering/Resolving]
  - Oropharyngeal pain [Recovered/Resolved]
  - Acne [Recovered/Resolved]
  - Rhinorrhoea [Recovering/Resolving]
  - Increased upper airway secretion [Recovering/Resolving]
  - Nasopharyngitis [Recovered/Resolved]
  - Acne [Recovered/Resolved]
  - Cough [Recovered/Resolved]
  - Malaise [Recovering/Resolving]
  - Sinus disorder [Recovering/Resolving]
  - Ventricular extrasystoles [Recovered/Resolved]
  - Sinusitis [Recovering/Resolving]
  - Paranasal cyst [Unknown]

NARRATIVE: CASE EVENT DATE: 2019
